FAERS Safety Report 10227755 (Version 1)
Quarter: 2014Q2

REPORT INFORMATION
  Report Type: Spontaneous
  Country: US (occurrence: None)
  Receive Date: 20140606
  Receipt Date: 20140606
  Transmission Date: 20141212
  Serious: Yes (Hospitalization)
  Sender: FDA-Public Use
  Company Number: UNT-2014-000411

PATIENT
  Age: 72 Year
  Sex: Female
  Weight: 75.3 kg

DRUGS (3)
  1. TYVASO [Suspect]
     Indication: PULMONARY ARTERIAL HYPERTENSION
     Route: 055
     Dates: start: 20140214
  2. WARFARIN (WARFARIN) [Concomitant]
  3. ADEMPAS (RIOCIGUAT) [Concomitant]

REACTIONS (2)
  - Blood pressure decreased [None]
  - Atrial fibrillation [None]
